FAERS Safety Report 18379669 (Version 3)
Quarter: 2020Q4

REPORT INFORMATION
  Report Type: Other
  Country: PT (occurrence: PT)
  Receive Date: 20201014
  Receipt Date: 20201110
  Transmission Date: 20210114
  Serious: Yes (Other)
  Sender: FDA-Public Use
  Company Number: PT-ROCHE-2694759

PATIENT
  Age: 79 Year
  Sex: Female

DRUGS (2)
  1. PREDNISOLONE. [Suspect]
     Active Substance: PREDNISOLONE
     Indication: PRODUCT USED FOR UNKNOWN INDICATION
     Dosage: UP TO 1.5 MG/KG/DAY FOR 4 MONTHS, AS CORTICOTHERAPY (CCT)
     Route: 065
  2. RITUXIMAB. [Suspect]
     Active Substance: RITUXIMAB
     Indication: IMMUNOSUPPRESSION
     Dosage: FOR 4 DOSES
     Route: 041

REACTIONS (6)
  - Off label use [Unknown]
  - Diverticulum intestinal [Unknown]
  - Intentional product use issue [Unknown]
  - Disease recurrence [Unknown]
  - Kaposi^s sarcoma [Recovered/Resolved]
  - Haemolysis [Unknown]
